FAERS Safety Report 8932030 (Version 2)
Quarter: 2013Q1

REPORT INFORMATION
  Report Type: Report from Study
  Country: US (occurrence: US)
  Receive Date: 20121128
  Receipt Date: 20130108
  Transmission Date: 20140127
  Serious: Yes (Death)
  Sender: FDA-Public Use
  Company Number: US-ROCHE-1158189

PATIENT
  Sex: Male
  Weight: 96.25 kg

DRUGS (3)
  1. CAPECITABINE [Suspect]
     Indication: RECTAL CANCER METASTATIC
     Route: 048
     Dates: start: 20110817
  2. CAPECITABINE [Suspect]
     Route: 048
     Dates: start: 20110727
  3. VICODIN [Concomitant]
     Indication: PAIN
     Route: 048
     Dates: start: 20110727

REACTIONS (1)
  - Rectal cancer metastatic [Fatal]
